FAERS Safety Report 7429731-6 (Version None)
Quarter: 2011Q2

REPORT INFORMATION
  Report Type: 
  Country: None (occurrence: None)
  Receive Date: 20110421
  Receipt Date: 20110418
  Transmission Date: 20111010
  Serious: Yes (Other)
  Sender: FDA-Public Use
  Company Number: CA-PFIZER INC-2011084606

PATIENT
  Age: 15 Year
  Sex: Female

DRUGS (4)
  1. GRAVOL TAB [Concomitant]
     Indication: NAUSEA
     Dosage: UNK
  2. NAPROXEN [Concomitant]
     Indication: DYSMENORRHOEA
     Dosage: UNK
  3. ZOLOFT [Suspect]
     Dosage: 50 MG, 1X/DAY, NIGHTIME
     Dates: start: 20110219
  4. ZOLOFT [Suspect]
     Dosage: 25 MG, SINGLE, MORNING

REACTIONS (5)
  - CONFUSIONAL STATE [None]
  - DRUG DOSE OMISSION [None]
  - CONVULSION [None]
  - WITHDRAWAL SYNDROME [None]
  - FEELING ABNORMAL [None]
